FAERS Safety Report 16802854 (Version 1)
Quarter: 2019Q3

REPORT INFORMATION
  Report Type: Spontaneous
  Country: CA (occurrence: CA)
  Receive Date: 20190913
  Receipt Date: 20190913
  Transmission Date: 20191005
  Serious: Yes (Other)
  Sender: FDA-Public Use
  Company Number: CA-ABBVIE-19K-028-2916750-00

PATIENT
  Age: 30 Year
  Sex: Female

DRUGS (9)
  1. PREDNISONE. [Suspect]
     Active Substance: PREDNISONE
     Indication: PRODUCT USED FOR UNKNOWN INDICATION
     Route: 065
  2. MEZAVANT [Suspect]
     Active Substance: MESALAMINE
     Indication: PRODUCT USED FOR UNKNOWN INDICATION
     Route: 065
  3. VERSED [Concomitant]
     Active Substance: MIDAZOLAM HYDROCHLORIDE
     Indication: SEDATION
  4. HUMIRA [Suspect]
     Active Substance: ADALIMUMAB
     Indication: COLITIS ULCERATIVE
     Route: 058
  5. FENTANYL. [Concomitant]
     Active Substance: FENTANYL
     Indication: SEDATION
     Dates: start: 20190702, end: 20190702
  6. SALOFALK ENEMAS [Concomitant]
     Indication: PRODUCT USED FOR UNKNOWN INDICATION
  7. IMURAN [Suspect]
     Active Substance: AZATHIOPRINE
     Indication: PRODUCT USED FOR UNKNOWN INDICATION
     Route: 065
  8. SALOFALK (AMINOSALICYLIC ACID) [Suspect]
     Active Substance: AMINOSALICYLIC ACID
     Indication: PRODUCT USED FOR UNKNOWN INDICATION
     Route: 065
  9. HUMIRA [Suspect]
     Active Substance: ADALIMUMAB
     Route: 058
     Dates: start: 201907

REACTIONS (18)
  - Colon dysplasia [Recovering/Resolving]
  - Proctitis [Unknown]
  - Renal impairment [Unknown]
  - Vomiting [Unknown]
  - Frequent bowel movements [Unknown]
  - Flatulence [Recovering/Resolving]
  - Drug ineffective [Unknown]
  - Rectal haemorrhage [Unknown]
  - Red blood cell sedimentation rate increased [Unknown]
  - Malaise [Unknown]
  - Faecal calprotectin increased [Unknown]
  - Mucous stools [Unknown]
  - Diarrhoea [Unknown]
  - Colitis [Unknown]
  - Nausea [Unknown]
  - Large intestine polyp [Recovering/Resolving]
  - Gastrointestinal disorder [Unknown]
  - Vitamin D decreased [Unknown]

NARRATIVE: CASE EVENT DATE: 2017
